FAERS Safety Report 19495114 (Version 2)
Quarter: 2021Q3

REPORT INFORMATION
  Report Type: Spontaneous
  Country: BR (occurrence: BR)
  Receive Date: 20210705
  Receipt Date: 20210719
  Transmission Date: 20211014
  Serious: Yes (Other)
  Sender: FDA-Public Use
  Company Number: BR-ABBVIE-20P-020-3554514-00

PATIENT
  Age: 68 Year
  Sex: Female
  Weight: 77 kg

DRUGS (7)
  1. CREON [Suspect]
     Active Substance: PANCRELIPASE AMYLASE\PANCRELIPASE LIPASE\PANCRELIPASE PROTEASE
     Indication: DIARRHOEA
     Dosage: UNIT DOSE: 25000 IU, 1 CAPSULE DURING BREAKFAST; 2 CAPSULES AT LUNCH; 2 CAPSULES AT DINNER
     Route: 048
  2. EUTHYROX [Concomitant]
     Active Substance: LEVOTHYROXINE SODIUM
     Indication: THYROID DISORDER
  3. EUTHYROX [Concomitant]
     Active Substance: LEVOTHYROXINE SODIUM
     Indication: HORMONE REPLACEMENT THERAPY
     Dosage: DURING FASTING
     Route: 048
  4. CREON [Suspect]
     Active Substance: PANCRELIPASE AMYLASE\PANCRELIPASE LIPASE\PANCRELIPASE PROTEASE
     Indication: PANCREATIC ENZYMES ABNORMAL
     Dosage: 25000 IUS NOT AVAILABLE, DOUBLED 10000,GOT SCARED OF RUNNING OUT OF DRUG AND REDUCED DOSE
     Route: 048
  5. CONCOR [Concomitant]
     Active Substance: BISOPROLOL FUMARATE
     Indication: CARDIAC OPERATION
     Route: 048
  6. CREON [Suspect]
     Active Substance: PANCRELIPASE AMYLASE\PANCRELIPASE LIPASE\PANCRELIPASE PROTEASE
     Dosage: DECIDED ON HER OWN TO ADMINISTER 1 DOSE AND A HALF, AFRAID SHE^D RUN OUT OF MEDICATION
     Route: 048
  7. ROSUVASTATIN. [Concomitant]
     Active Substance: ROSUVASTATIN
     Indication: BLOOD CHOLESTEROL INCREASED
     Dosage: AT NIGHT;
     Route: 048

REACTIONS (10)
  - Dyspepsia [Unknown]
  - Aortic valve disease [Unknown]
  - Aortic aneurysm repair [Unknown]
  - Underdose [Unknown]
  - Nervousness [Unknown]
  - Gastrointestinal motility disorder [Unknown]
  - Aortic aneurysm [Unknown]
  - Aortic valve repair [Unknown]
  - Product administration interrupted [Unknown]
  - Diarrhoea [Not Recovered/Not Resolved]

NARRATIVE: CASE EVENT DATE: 202003
